FAERS Safety Report 5420905-2 (Version None)
Quarter: 2007Q3

REPORT INFORMATION
  Report Type: 
  Country: None (occurrence: None)
  Receive Date: 20070821
  Receipt Date: 20070806
  Transmission Date: 20080115
  Serious: Yes (Other)
  Sender: FDA-Public Use
  Company Number: US-ASTRAZENECA-2007UW19769

PATIENT
  Sex: Female

DRUGS (1)
  1. MERREM [Suspect]
     Route: 042

REACTIONS (1)
  - LACERATION [None]
